FAERS Safety Report 11977211 (Version 1)
Quarter: 2016Q1

REPORT INFORMATION
  Report Type: Report from Study
  Country: VE (occurrence: VE)
  Receive Date: 20160129
  Receipt Date: 20160129
  Transmission Date: 20160526
  Serious: Yes (Death, Other)
  Sender: FDA-Public Use
  Company Number: PHHY2016VE011387

PATIENT
  Age: 70 Year
  Sex: Female

DRUGS (1)
  1. AFINITOR [Suspect]
     Active Substance: EVEROLIMUS
     Indication: RENAL CANCER
     Dosage: 10 MG, QD
     Route: 048

REACTIONS (6)
  - Death [Fatal]
  - Drug intolerance [Unknown]
  - Metastases to liver [Unknown]
  - Malignant neoplasm progression [Unknown]
  - Malaise [Unknown]
  - Abasia [Unknown]

NARRATIVE: CASE EVENT DATE: 20151104
